FAERS Safety Report 7934633-2 (Version None)
Quarter: 2011Q4

REPORT INFORMATION
  Report Type: 
  Country: None (occurrence: None)
  Receive Date: 20111117
  Receipt Date: 20111103
  Transmission Date: 20120403
  Serious: Yes (Other)
  Sender: FDA-Public Use
  Company Number: 2011SP043670

PATIENT
  Age: 61 Year
  Sex: Female

DRUGS (4)
  1. RIBAVIRIN [Suspect]
     Indication: PRODUCT USED FOR UNKNOWN INDICATION
     Dosage: 1000 MG;QD;
     Dates: start: 20110715, end: 20110912
  2. BOCEPREVIR (SCH-503034) [Suspect]
     Indication: HEPATITIS C
     Dosage: 800 MG;Q8H;PO
     Route: 048
     Dates: start: 20110812, end: 20110912
  3. PEG-INTRON [Suspect]
     Indication: PRODUCT USED FOR UNKNOWN INDICATION
     Dosage: 100 MCG;QW
     Dates: start: 20110715, end: 20110912
  4. INDAPAMIDA [Concomitant]

REACTIONS (8)
  - MUCOSAL ULCERATION [None]
  - FATIGUE [None]
  - DYSPHAGIA [None]
  - OROPHARYNGEAL PAIN [None]
  - WEIGHT DECREASED [None]
  - ODYNOPHAGIA [None]
  - DYSPHONIA [None]
  - DYSGEUSIA [None]
